FAERS Safety Report 23226938 (Version 1)
Quarter: 2023Q4

REPORT INFORMATION
  Report Type: Spontaneous
  Country: US (occurrence: US)
  Receive Date: 20231124
  Receipt Date: 20231124
  Transmission Date: 20240110
  Serious: Yes (Other)
  Sender: FDA-Public Use
  Company Number: US-BRISTOL-MYERS SQUIBB COMPANY-2023-170084

PATIENT
  Age: 57 Year
  Sex: Male

DRUGS (6)
  1. ENASIDENIB [Suspect]
     Active Substance: ENASIDENIB
     Indication: Myelofibrosis
  2. DECITABINE [Suspect]
     Active Substance: DECITABINE
     Indication: Myelofibrosis
  3. VENETOCLAX [Suspect]
     Active Substance: VENETOCLAX
     Indication: Myelofibrosis
  4. CLADRIBINE [Suspect]
     Active Substance: CLADRIBINE
     Indication: Myelofibrosis
  5. CYTARABINE [Suspect]
     Active Substance: CYTARABINE
     Indication: Myelofibrosis
  6. MITOXANTRONE [Suspect]
     Active Substance: MITOXANTRONE HYDROCHLORIDE
     Indication: Myelofibrosis

REACTIONS (2)
  - Differentiation syndrome [Unknown]
  - Off label use [Unknown]
